FAERS Safety Report 8895799 (Version 4)
Quarter: 2016Q2

REPORT INFORMATION
  Report Type: Report from Study
  Country: BR (occurrence: BR)
  Receive Date: 20121108
  Receipt Date: 20160606
  Transmission Date: 20160815
  Serious: Yes (Other)
  Sender: FDA-Public Use
  Company Number: BR-ROCHE-1152438

PATIENT
  Sex: Female
  Weight: 65 kg

DRUGS (5)
  1. BUSONID [Concomitant]
     Active Substance: BUDESONIDE
     Indication: NASAL POLYPS
     Dosage: 4 DF (4 SPRAYS IN THE NOSTRIL), QD (STARTED 3 YEARS AND HALF AGO)
     Route: 045
  2. XOLAIR [Suspect]
     Active Substance: OMALIZUMAB
     Indication: RESPIRATORY DISORDER
  3. MONTELAIR [Concomitant]
     Active Substance: MONTELUKAST SODIUM
     Indication: ASTHMA
     Dosage: 10 MG, QHS (STARTED 4 YEARS AGO)
     Route: 048
  4. XOLAIR [Suspect]
     Active Substance: OMALIZUMAB
     Indication: ASTHMA
     Dosage: 300 MG, QMO
     Route: 058
     Dates: start: 20050605
  5. XOLAIR [Suspect]
     Active Substance: OMALIZUMAB
     Indication: BLOOD IMMUNOGLOBULIN E INCREASED
     Dosage: UNK
     Route: 058
     Dates: start: 20120917

REACTIONS (18)
  - Dysphonia [Not Recovered/Not Resolved]
  - Hypersensitivity [Not Recovered/Not Resolved]
  - Asthmatic crisis [Recovered/Resolved]
  - Bacterial allergy [Recovering/Resolving]
  - Blood immunoglobulin E increased [Recovering/Resolving]
  - Intervertebral disc protrusion [Recovering/Resolving]
  - Bronchitis [Recovering/Resolving]
  - Cough [Not Recovered/Not Resolved]
  - Weight increased [Not Recovered/Not Resolved]
  - Headache [Not Recovered/Not Resolved]
  - Rhinitis [Recovering/Resolving]
  - Wheezing [Not Recovered/Not Resolved]
  - Increased bronchial secretion [Not Recovered/Not Resolved]
  - Product use issue [Unknown]
  - Food allergy [Recovered/Resolved]
  - Fatigue [Not Recovered/Not Resolved]
  - Seborrhoea [Not Recovered/Not Resolved]
  - Nausea [Not Recovered/Not Resolved]
